FAERS Safety Report 22292968 (Version 9)
Quarter: 2024Q3

REPORT INFORMATION
  Report Type: Spontaneous
  Country: US (occurrence: US)
  Receive Date: 20230508
  Receipt Date: 20240917
  Transmission Date: 20241017
  Serious: Yes (Other)
  Sender: BRISTOL MYERS SQUIBB
  Company Number: US-BRISTOL-MYERS SQUIBB COMPANY-2023-062268

PATIENT
  Age: 80 Year
  Sex: Female

DRUGS (2)
  1. REVLIMID [Suspect]
     Active Substance: LENALIDOMIDE
     Indication: Plasma cell myeloma
     Dosage: FREQ: DAILY?1 CAPSULE DAILY FOR 21 DAYS THEN 7 DAYS OFF
     Route: 048
     Dates: start: 202103
  2. REVLIMID [Suspect]
     Active Substance: LENALIDOMIDE
     Dosage: FREQ: QD (EVERY DAY) FOR 7 DAYS ON THEN 7 DAYS OFF
     Route: 048

REACTIONS (8)
  - Neuropathy peripheral [Unknown]
  - Food poisoning [Unknown]
  - Off label use [Unknown]
  - Pruritus [Unknown]
  - Fatigue [Unknown]
  - Product dose omission issue [Unknown]
  - Peripheral swelling [Unknown]
  - Arthritis reactive [Unknown]

NARRATIVE: CASE EVENT DATE: 20230306
